FAERS Safety Report 19358231 (Version 1)
Quarter: 2021Q2

REPORT INFORMATION
  Report Type: Spontaneous
  Country: US (occurrence: US)
  Receive Date: 20210602
  Receipt Date: 20210602
  Transmission Date: 20210717
  Serious: No
  Sender: FDA-Public Use
  Company Number: US-BAYER-2021-151098

PATIENT

DRUGS (1)
  1. CLARITIN [Suspect]
     Active Substance: LORATADINE
     Dosage: HALF TAB DAILY
     Route: 048
     Dates: start: 2020, end: 20210601

REACTIONS (2)
  - Incorrect dose administered [Unknown]
  - Feeling jittery [Unknown]

NARRATIVE: CASE EVENT DATE: 2020
